FAERS Safety Report 24265711 (Version 1)
Quarter: 2024Q3

REPORT INFORMATION
  Report Type: Spontaneous
  Country: CN (occurrence: CN)
  Receive Date: 20240830
  Receipt Date: 20240830
  Transmission Date: 20241016
  Serious: Yes (Other)
  Sender: AMGEN
  Company Number: CN-SERVIER-S24010589

PATIENT

DRUGS (4)
  1. IVABRADINE [Suspect]
     Active Substance: IVABRADINE
     Indication: Cardiac failure acute
     Dosage: 5 MG, BID
     Route: 048
  2. FUROSEMIDE [Concomitant]
     Active Substance: FUROSEMIDE
     Indication: Cardiac failure acute
     Dosage: UNK
     Route: 048
  3. DOPAMINE [Concomitant]
     Active Substance: DOPAMINE HYDROCHLORIDE
     Indication: Cardiac failure acute
     Dosage: UNK
     Route: 040
  4. NITROGLYCERIN [Concomitant]
     Active Substance: NITROGLYCERIN
     Indication: Cardiac failure acute
     Dosage: UNK
     Route: 040

REACTIONS (7)
  - Acute myocardial infarction [Unknown]
  - Acute coronary syndrome [Unknown]
  - Acute left ventricular failure [Unknown]
  - Hallucination, visual [Unknown]
  - Gastrointestinal disorder [Unknown]
  - Hypotension [Unknown]
  - Product use issue [Recovered/Resolved]
